FAERS Safety Report 13076537 (Version 1)
Quarter: 2016Q4

REPORT INFORMATION
  Report Type: Spontaneous
  Country: IL (occurrence: IL)
  Receive Date: 20161230
  Receipt Date: 20161230
  Transmission Date: 20170207
  Serious: Yes (Hospitalization, Other)
  Sender: FDA-Public Use
  Company Number: IL-JNJFOC-20161224447

PATIENT
  Age: 91 Year
  Sex: Female

DRUGS (7)
  1. XARELTO [Suspect]
     Active Substance: RIVAROXABAN
     Indication: ATRIAL FIBRILLATION
     Route: 048
     Dates: start: 20161214, end: 2016
  2. CONCOR [Concomitant]
     Active Substance: BISOPROLOL FUMARATE
     Route: 065
  3. BISOPROLOL [Concomitant]
     Active Substance: BISOPROLOL
     Route: 065
  4. MIRTAZAPINE. [Concomitant]
     Active Substance: MIRTAZAPINE
     Route: 065
  5. EXELON [Concomitant]
     Active Substance: RIVASTIGMINE TARTRATE
     Route: 065
  6. XARELTO [Suspect]
     Active Substance: RIVAROXABAN
     Indication: CEREBROVASCULAR ACCIDENT PROPHYLAXIS
     Route: 048
     Dates: start: 20161214, end: 2016
  7. AMIODARONE HYDROCHLORIDE. [Concomitant]
     Active Substance: AMIODARONE HYDROCHLORIDE
     Route: 065

REACTIONS (11)
  - Jaundice cholestatic [Not Recovered/Not Resolved]
  - Subcutaneous haematoma [Recovered/Resolved]
  - Haemorrhage [Recovered/Resolved]
  - Infection [Not Recovered/Not Resolved]
  - Cholangitis [Not Recovered/Not Resolved]
  - Blood creatinine increased [Unknown]
  - Vessel puncture site haemorrhage [Recovered/Resolved]
  - Dehydration [Unknown]
  - Renal impairment [Unknown]
  - International normalised ratio increased [Unknown]
  - Coagulopathy [Unknown]

NARRATIVE: CASE EVENT DATE: 201612
